FAERS Safety Report 6336398-7 (Version None)
Quarter: 2009Q3

REPORT INFORMATION
  Report Type: 
  Country: None (occurrence: None)
  Receive Date: 20090828
  Receipt Date: 20090819
  Transmission Date: 20100115
  Serious: Yes (Life-Threatening)
  Sender: FDA-Public Use
  Company Number: TCI2009A03264

PATIENT
  Age: 66 Year
  Sex: Male

DRUGS (11)
  1. PREVPAC [Suspect]
     Indication: HELICOBACTER INFECTION
     Dosage: 1 CARD (0.5 CARD,2 IN 1 D) PER ORAL
     Route: 048
     Dates: start: 20090727, end: 20090730
  2. CANDESARTAN CILEXETIL [Concomitant]
  3. DIGOXIN [Concomitant]
  4. LASIX [Concomitant]
  5. ASPIRIN [Concomitant]
  6. WARFARIN (WARFARIN POTASSIUM) [Concomitant]
  7. LIPITOR [Concomitant]
  8. CONIEL (BENIDIPINE HYDROCHLORIDE) [Concomitant]
  9. GASTROM (ECABET MONOSODIUM) [Concomitant]
  10. AMARYL [Concomitant]
  11. COMELIAN KOWA (DILAZEP DIHYDROCHLORIDE) [Concomitant]

REACTIONS (5)
  - DIZZINESS [None]
  - FALL [None]
  - HYPERKALAEMIA [None]
  - LOSS OF CONSCIOUSNESS [None]
  - RENAL FAILURE ACUTE [None]
